FAERS Safety Report 8577866-7 (Version None)
Quarter: 2012Q3

REPORT INFORMATION
  Report Type: 
  Country: None (occurrence: None)
  Receive Date: 20120808
  Receipt Date: 20120802
  Transmission Date: 20120928
  Serious: No
  Sender: FDA-Public Use
  Company Number: US-BIOGENIDEC-2012BI029080

PATIENT
  Age: 64 Year
  Sex: Female

DRUGS (4)
  1. AVONEX [Concomitant]
     Indication: MULTIPLE SCLEROSIS
     Route: 030
     Dates: start: 20081101
  2. TYSABRI [Suspect]
     Indication: MULTIPLE SCLEROSIS
     Route: 042
     Dates: start: 20080701, end: 20080730
  3. TYSABRI [Suspect]
     Route: 042
     Dates: start: 20120430
  4. TYSABRI [Suspect]
     Route: 042
     Dates: start: 20081120, end: 20110819

REACTIONS (2)
  - DIZZINESS [None]
  - BALANCE DISORDER [None]
